FAERS Safety Report 7128003-7 (Version None)
Quarter: 2010Q4

REPORT INFORMATION
  Report Type: 
  Country: None (occurrence: None)
  Receive Date: 20101130
  Receipt Date: 20101116
  Transmission Date: 20110411
  Serious: No
  Sender: FDA-Public Use
  Company Number: PHHY2010US78792

PATIENT
  Sex: Female

DRUGS (4)
  1. TASIGNA [Suspect]
     Indication: CHRONIC MYELOID LEUKAEMIA
     Dosage: 400 MG, BID
     Route: 048
     Dates: start: 20071002
  2. TASIGNA [Suspect]
     Dosage: 200 MG, BID
  3. XANAX [Concomitant]
  4. METHADONE [Concomitant]

REACTIONS (1)
  - NEUTROPENIA [None]
